FAERS Safety Report 5650230-6 (Version None)
Quarter: 2008Q1

REPORT INFORMATION
  Report Type: 
  Country: None (occurrence: None)
  Receive Date: 20080303
  Receipt Date: 20080217
  Transmission Date: 20080703
  Serious: Yes (Hospitalization, Disabling)
  Sender: FDA-Public Use
  Company Number: T06-JPN-02694-01

PATIENT
  Age: 77 Year
  Sex: Male
  Weight: 55 kg

DRUGS (6)
  1. MEMANTINE HCL [Suspect]
     Indication: DEMENTIA ALZHEIMER'S TYPE
     Dosage: 20 MG QD; PO
     Route: 048
     Dates: start: 20060324, end: 20060720
  2. AMLODIPINE BESYLATE [Concomitant]
  3. BRINZOLAMIDE [Concomitant]
  4. BUNAZOSIN HYDROCHLORIDE [Concomitant]
  5. LATANOPROST [Concomitant]
  6. TIMOLOL MALEATE [Concomitant]

REACTIONS (7)
  - CAROTID ARTERY STENOSIS [None]
  - CEREBRAL ARTERY STENOSIS [None]
  - CONDITION AGGRAVATED [None]
  - GLAUCOMA [None]
  - INTRAOCULAR PRESSURE INCREASED [None]
  - RETINAL VEIN OCCLUSION [None]
  - VISUAL ACUITY REDUCED [None]
